FAERS Safety Report 16185857 (Version 3)
Quarter: 2019Q2

REPORT INFORMATION
  Report Type: Spontaneous
  Country: JP (occurrence: JP)
  Receive Date: 20190411
  Receipt Date: 20190606
  Transmission Date: 20190711
  Serious: Yes (Life-Threatening, Hospitalization, Disabling, Other)
  Sender: FDA-Public Use
  Company Number: JP-JNJFOC-20190411781

PATIENT
  Age: 55 Year
  Sex: Female

DRUGS (8)
  1. ACYCLOVIR. [Concomitant]
     Active Substance: ACYCLOVIR
     Indication: HERPES ZOSTER MENINGOMYELITIS
     Route: 065
     Dates: start: 20190308, end: 20190311
  2. ACYCLOVIR. [Concomitant]
     Active Substance: ACYCLOVIR
     Indication: VARICELLA ZOSTER VIRUS INFECTION
     Route: 065
     Dates: start: 20190308, end: 20190311
  3. TRAMADOL HYDROCHLORIDE AND ACETAMINOPHEN [Suspect]
     Active Substance: ACETAMINOPHEN\TRAMADOL HYDROCHLORIDE
     Indication: PAIN
     Route: 048
     Dates: start: 20190211, end: 20190319
  4. ARASENA A [Suspect]
     Active Substance: VIDARABINE
     Indication: HERPES ZOSTER MENINGOMYELITIS
     Route: 041
     Dates: start: 20190312, end: 20190318
  5. LYRICA [Suspect]
     Active Substance: PREGABALIN
     Indication: PRODUCT USED FOR UNKNOWN INDICATION
     Route: 048
     Dates: end: 20190318
  6. ACYCLOVIR. [Concomitant]
     Active Substance: ACYCLOVIR
     Indication: HERPES ZOSTER MENINGOMYELITIS
     Route: 065
     Dates: start: 20190308, end: 20190311
  7. ACYCLOVIR. [Concomitant]
     Active Substance: ACYCLOVIR
     Indication: VARICELLA ZOSTER VIRUS INFECTION
     Route: 065
     Dates: start: 20190308, end: 20190311
  8. NOVAMIN [Concomitant]
     Indication: PRODUCT USED FOR UNKNOWN INDICATION
     Route: 048

REACTIONS (3)
  - Drug eruption [Unknown]
  - Altered state of consciousness [Recovered/Resolved with Sequelae]
  - Renal impairment [Unknown]

NARRATIVE: CASE EVENT DATE: 20190311
